FAERS Safety Report 16245846 (Version 1)
Quarter: 2019Q2

REPORT INFORMATION
  Report Type: Spontaneous
  Country: US (occurrence: US)
  Receive Date: 20190426
  Receipt Date: 20190426
  Transmission Date: 20190711
  Serious: Yes (Hospitalization)
  Sender: FDA-Public Use
  Company Number: US-TEVA-2019-US-1041895

PATIENT
  Sex: Female
  Weight: 50.35 kg

DRUGS (2)
  1. DIAZEPAM TEVA [Suspect]
     Active Substance: DIAZEPAM
     Indication: HYPOTONIA
     Dosage: 4 TABLETS TAKEN BY MOUTH DAILY
     Route: 048
     Dates: start: 20181206
  2. HYDROCODONE/ACETAMINOPHEN [Suspect]
     Active Substance: ACETAMINOPHEN\HYDROCODONE
     Indication: PAIN
     Dosage: DOSE: 5/325MG; 6 TABLETS TAKEN BY MOUTH DAILY
     Route: 048

REACTIONS (4)
  - Anxiety [Unknown]
  - Drug withdrawal syndrome [Unknown]
  - Pain [Unknown]
  - Fibromyalgia [Unknown]
